FAERS Safety Report 7247695-5 (Version None)
Quarter: 2011Q1

REPORT INFORMATION
  Report Type: 
  Country: None (occurrence: None)
  Receive Date: 20110127
  Receipt Date: 20110119
  Transmission Date: 20110831
  Serious: Yes (Other)
  Sender: FDA-Public Use
  Company Number: US-JNJFOC-20110105478

PATIENT
  Sex: Female

DRUGS (4)
  1. DURAGESIC-50 [Suspect]
     Indication: BONE PAIN
     Route: 062
  2. DURAGESIC-50 [Suspect]
     Route: 062
  3. DURAGESIC-50 [Suspect]
     Route: 062
  4. FENTANYL [Suspect]
     Indication: ILL-DEFINED DISORDER
     Route: 062

REACTIONS (5)
  - PRODUCT QUALITY ISSUE [None]
  - BONE PAIN [None]
  - WRONG TECHNIQUE IN DRUG USAGE PROCESS [None]
  - THERAPEUTIC RESPONSE DECREASED [None]
  - SPINAL CORD NEOPLASM [None]
